FAERS Safety Report 8616296-6 (Version None)
Quarter: 2012Q3

REPORT INFORMATION
  Report Type: 
  Country: None (occurrence: None)
  Receive Date: 20120823
  Receipt Date: 20120814
  Transmission Date: 20120928
  Serious: Yes (Hospitalization)
  Sender: FDA-Public Use
  Company Number: BR-ASTRAZENECA-2012SE58115

PATIENT
  Age: 74 Year
  Sex: Male

DRUGS (3)
  1. METOPROLOL SUCCINATE [Suspect]
     Route: 048
     Dates: start: 20120401
  2. CRESTOR [Suspect]
     Route: 048
     Dates: start: 20120401
  3. BRILINTA [Suspect]
     Route: 048
     Dates: start: 20120401

REACTIONS (2)
  - ADVERSE EVENT [None]
  - CORONARY ARTERY OCCLUSION [None]
